FAERS Safety Report 5383155-4 (Version None)
Quarter: 2007Q3

REPORT INFORMATION
  Report Type: 
  Country: None (occurrence: None)
  Receive Date: 20070710
  Receipt Date: 20070628
  Transmission Date: 20080115
  Serious: Yes (Other)
  Sender: FDA-Public Use
  Company Number: US-ELI_LILLY_AND_COMPANY-US200706006344

PATIENT
  Age: 78 Year
  Sex: Female

DRUGS (2)
  1. HUMULIN 70/30 [Suspect]
     Dates: start: 19990101
  2. HUMULIN N [Suspect]

REACTIONS (2)
  - CARDIAC DISORDER [None]
  - CARDIAC OPERATION [None]
